FAERS Safety Report 10065007 (Version 2)
Quarter: 2014Q2

REPORT INFORMATION
  Report Type: Spontaneous
  Country: US (occurrence: US)
  Receive Date: 20140408
  Receipt Date: 20140408
  Transmission Date: 20141212
  Serious: Yes (Other)
  Sender: FDA-Public Use
  Company Number: US-SA-CART-1000092

PATIENT
  Age: 32 Year
  Sex: Female

DRUGS (1)
  1. CARTICEL [Suspect]
     Indication: CARTILAGE INJURY
     Dosage: UNK
     Route: 014
     Dates: start: 20110829, end: 20110829

REACTIONS (2)
  - Infection [Unknown]
  - Graft complication [Unknown]
